FAERS Safety Report 9189459 (Version 1)
Quarter: 2013Q1

REPORT INFORMATION
  Report Type: Spontaneous
  Country: AR (occurrence: AR)
  Receive Date: 20130326
  Receipt Date: 20130326
  Transmission Date: 20140127
  Serious: Yes (Other)
  Sender: FDA-Public Use
  Company Number: PHHY2013AR028533

PATIENT
  Age: 73 Year
  Sex: Female

DRUGS (1)
  1. EXFORGE [Suspect]
     Indication: BLOOD PRESSURE INCREASED
     Dosage: 1 DF (160 MG VALS/10 MG AMLO), DAILY
     Route: 048

REACTIONS (5)
  - Upper limb fracture [Recovering/Resolving]
  - Foot fracture [Recovering/Resolving]
  - Tendon disorder [Recovering/Resolving]
  - Syncope [Recovering/Resolving]
  - Blood pressure decreased [Unknown]
